FAERS Safety Report 7007628-3 (Version None)
Quarter: 2010Q3

REPORT INFORMATION
  Report Type: 
  Country: None (occurrence: None)
  Receive Date: 20100922
  Receipt Date: 20100910
  Transmission Date: 20110219
  Serious: Yes (Other)
  Sender: FDA-Public Use
  Company Number: GB-PFIZER INC-2010115092

PATIENT
  Age: 48 Year
  Sex: Female

DRUGS (2)
  1. PREGABALIN [Suspect]
     Dosage: 100MG MORNING, 200MG NIGHT
     Dates: start: 20100301
  2. PREGABALIN [Suspect]
     Dosage: 125MG MORNING, 250MG EVENING
     Dates: start: 20100801

REACTIONS (10)
  - ANXIETY [None]
  - BALANCE DISORDER [None]
  - DISTURBANCE IN ATTENTION [None]
  - FEELING DRUNK [None]
  - HALLUCINATION [None]
  - HYPOREFLEXIA [None]
  - MUSCLE TWITCHING [None]
  - PANIC DISORDER [None]
  - TACHYPHRENIA [None]
  - WEIGHT INCREASED [None]
